FAERS Safety Report 4759278-7 (Version None)
Quarter: 2005Q3

REPORT INFORMATION
  Report Type: 
  Country: None (occurrence: None)
  Receive Date: 20050831
  Receipt Date: 20050815
  Transmission Date: 20060218
  Serious: Yes (Hospitalization)
  Sender: FDA-Public Use
  Company Number: 2003IM000559

PATIENT
  Age: 78 Year
  Sex: Female
  Weight: 71.8 kg

DRUGS (11)
  1. INTERFERON GAMMA-1B [Suspect]
     Indication: OVARIAN CANCER
     Dosage: 100 UG, TIW, SUBCUTANEOUS
     Route: 058
     Dates: start: 20030512
  2. PACLITAXEL [Suspect]
     Dosage: 308 MG, Q3W, INTRAVENOUS
     Route: 042
     Dates: start: 20030512
  3. TENORMIN [Concomitant]
  4. ASPIRIN [Concomitant]
  5. DIOVAN [Concomitant]
  6. LIPITOR [Concomitant]
  7. LORAZEPAM [Concomitant]
  8. DICYCLOMINE HYDROCHLORIDE [Concomitant]
  9. BACTRIM DS [Concomitant]
  10. GLYCERIN [Concomitant]
  11. CARBOPLATIN [Suspect]
     Dosage: 377 MG, Q3W, INTRAVENOUS
     Route: 042
     Dates: start: 20030512

REACTIONS (7)
  - CONSTIPATION [None]
  - DEHYDRATION [None]
  - DIARRHOEA [None]
  - DIFFICULTY IN WALKING [None]
  - HYPERTENSION [None]
  - HYPOTENSION [None]
  - MOBILITY DECREASED [None]
